FAERS Safety Report 13697696 (Version 1)
Quarter: 2017Q2

REPORT INFORMATION
  Report Type: Spontaneous
  Country: JP (occurrence: JP)
  Receive Date: 20170628
  Receipt Date: 20170628
  Transmission Date: 20170830
  Serious: Yes (Other)
  Sender: FDA-Public Use
  Company Number: JP-JNJFOC-20161102125

PATIENT
  Age: 67 Year
  Sex: Male

DRUGS (3)
  1. RISPERDAL [Suspect]
     Active Substance: RISPERIDONE
     Indication: SCHIZOPHRENIA
     Route: 048
     Dates: start: 201704, end: 2017
  2. RISPERDAL [Suspect]
     Active Substance: RISPERIDONE
     Indication: SCHIZOPHRENIA
     Dosage: MORNING AND EVENING
     Route: 048
     Dates: start: 20161027
  3. RISPERDAL [Suspect]
     Active Substance: RISPERIDONE
     Indication: SCHIZOPHRENIA
     Dosage: IN THE MORNING AND EVENING
     Route: 048
     Dates: start: 2017

REACTIONS (7)
  - Malaise [Unknown]
  - Speech disorder [Not Recovered/Not Resolved]
  - Spinal column stenosis [Recovering/Resolving]
  - Treatment noncompliance [Unknown]
  - Somnolence [Not Recovered/Not Resolved]
  - Extrapyramidal disorder [Not Recovered/Not Resolved]
  - Erythema multiforme [Unknown]

NARRATIVE: CASE EVENT DATE: 2016
